FAERS Safety Report 9585814 (Version 2)
Quarter: 2014Q1

REPORT INFORMATION
  Report Type: Spontaneous
  Country: GB (occurrence: None)
  Receive Date: 20131001
  Receipt Date: 20140129
  Transmission Date: 20141002
  Serious: Yes (Hospitalization, Other)
  Sender: FDA-Public Use
  Company Number: AUR-APL-2013-07871

PATIENT
  Age: 55 Year
  Sex: Female
  Weight: 75 kg

DRUGS (13)
  1. RIBAVIRIN [Suspect]
     Indication: CHRONIC HEPATITIS C
     Dosage: (400 MG IN THE MORNING AND 600 MG IN THE EVENING)
     Route: 048
     Dates: start: 20121023, end: 20121120
  2. DOMPERIDONE [Suspect]
     Indication: PRODUCT USED FOR UNKNOWN INDICATION
     Dosage: 30 MG (10 MG, 3 IN 1 D), UNKNOWN
     Dates: start: 20121026
  3. ONDANSETRON [Suspect]
     Indication: PRODUCT USED FOR UNKNOWN INDICATION
     Dosage: UNKNOWN
  4. TRIMETHOPRIM [Suspect]
     Indication: PRODUCT USED FOR UNKNOWN INDICATION
  5. INCIVO [Suspect]
     Indication: CHRONIC HEPATITIS C
     Dosage: 2250 MG (750 MG, 3 IN 1 D), ORAL
     Dates: start: 20121023, end: 20121207
  6. PEGINTERFERON ALFA-2B [Suspect]
     Indication: CHRONIC HEPATITIS C
     Route: 058
     Dates: start: 20121023, end: 20121207
  7. BEECHAM POWDER [Suspect]
     Indication: PRODUCT USED FOR UNKNOWN INDICATION
  8. CLARITHROMYCIN [Suspect]
     Indication: PRODUCT USED FOR UNKNOWN INDICATION
     Dates: end: 20121121
  9. CYCLIZINE [Suspect]
     Indication: PRODUCT USED FOR UNKNOWN INDICATION
  10. METACLOPRAMIDE [Suspect]
     Indication: PRODUCT USED FOR UNKNOWN INDICATION
     Dosage: 10 MG AS REQUIRED
  11. PARACETAMOL (PARACETAMOL) [Concomitant]
  12. XYLOPROCT (XYLOPROCT PLUS) [Concomitant]
  13. EPADERM (EPADERM) [Concomitant]

REACTIONS (35)
  - Malaise [None]
  - Malaise [None]
  - Pharyngitis [None]
  - Painful defaecation [None]
  - Malaise [None]
  - Proctalgia [None]
  - Pain in extremity [None]
  - Dry skin [None]
  - Rash [None]
  - Vomiting [None]
  - Nausea [None]
  - Dehydration [None]
  - Rash generalised [None]
  - Rash erythematous [None]
  - Haemorrhoids [None]
  - Skin disorder [None]
  - Renal failure acute [None]
  - Headache [None]
  - Fatigue [None]
  - Cystitis [None]
  - Oral candidiasis [None]
  - Urinary tract infection [None]
  - Vertigo [None]
  - Blood potassium decreased [None]
  - Blood calcium decreased [None]
  - Anaemia [None]
  - Hypovolaemia [None]
  - Drug interaction [None]
  - Eczema [None]
  - Pharyngitis [None]
  - Blood sodium decreased [None]
  - Aspartate aminotransferase increased [None]
  - Alanine aminotransferase increased [None]
  - Blood alkaline phosphatase increased [None]
  - Gamma-glutamyltransferase increased [None]
